FAERS Safety Report 6179036-9 (Version None)
Quarter: 2009Q2

REPORT INFORMATION
  Report Type: 
  Country: None (occurrence: None)
  Receive Date: 20090505
  Receipt Date: 20090428
  Transmission Date: 20091009
  Serious: Yes (Death)
  Sender: FDA-Public Use
  Company Number: TW-ASTRAZENECA-2009AP02125

PATIENT
  Age: 50 Year
  Sex: Female

DRUGS (4)
  1. SEROQUEL [Suspect]
     Indication: BIPOLAR DISORDER
     Route: 048
     Dates: start: 20081028, end: 20081030
  2. LITHIUM CARBONATE [Suspect]
     Indication: BIPOLAR DISORDER
     Route: 048
     Dates: start: 20081028, end: 20081030
  3. ZYPREXA [Concomitant]
     Route: 065
     Dates: start: 20081028
  4. HALDOL [Concomitant]
     Route: 065
     Dates: start: 20081029

REACTIONS (2)
  - ARRHYTHMIA [None]
  - NEUROLEPTIC MALIGNANT SYNDROME [None]
